FAERS Safety Report 8050899-5 (Version None)
Quarter: 2012Q1

REPORT INFORMATION
  Report Type: 
  Country: None (occurrence: None)
  Receive Date: 20120117
  Receipt Date: 20120109
  Transmission Date: 20120608
  Serious: Yes (Other)
  Sender: FDA-Public Use
  Company Number: PHEH2012US000885

PATIENT
  Age: 81 Year
  Sex: Female

DRUGS (7)
  1. ASPIRIN [Concomitant]
  2. METOPROLOL TARTRATE [Concomitant]
  3. LOVASTATIN [Concomitant]
  4. KLOR-CON [Concomitant]
  5. EXELON [Suspect]
     Dosage: 4.6 MG\24H
     Route: 062
  6. HYDRALAZINE HCL [Concomitant]
  7. BENICAR [Concomitant]

REACTIONS (8)
  - ANXIETY [None]
  - CONFUSIONAL STATE [None]
  - FALL [None]
  - HEADACHE [None]
  - MEMORY IMPAIRMENT [None]
  - ACALCULIA [None]
  - DIZZINESS [None]
  - MUSCLE DISORDER [None]
